FAERS Safety Report 9051869 (Version 1)
Quarter: 2013Q1

REPORT INFORMATION
  Report Type: Spontaneous
  Country: US (occurrence: None)
  Receive Date: 20130130
  Receipt Date: 20130130
  Transmission Date: 20140127
  Serious: Yes (Hospitalization)
  Sender: FDA-Public Use
  Company Number: None

PATIENT
  Age: 90 Year
  Sex: Female
  Weight: 53.5 kg

DRUGS (10)
  1. PLAVIX [Suspect]
     Indication: TRANSIENT ISCHAEMIC ATTACK
     Route: 048
  2. ASA [Suspect]
     Indication: TRANSIENT ISCHAEMIC ATTACK
     Route: 048
  3. MVI [Concomitant]
  4. VIT D3 [Concomitant]
  5. MIRALAX [Concomitant]
  6. LIPITOR [Concomitant]
  7. IRON SULFATE [Concomitant]
  8. HYDROXYUREA [Concomitant]
  9. LEVOTHYROXINE [Concomitant]
  10. METAMUCIL [Concomitant]

REACTIONS (3)
  - Upper gastrointestinal haemorrhage [None]
  - Peptic ulcer [None]
  - Condition aggravated [None]
